FAERS Safety Report 21608035 (Version 1)
Quarter: 2022Q4

REPORT INFORMATION
  Report Type: Spontaneous
  Country: IT (occurrence: IT)
  Receive Date: 20221117
  Receipt Date: 20221117
  Transmission Date: 20230112
  Serious: Yes (Hospitalization, Other)
  Sender: FDA-Public Use
  Company Number: IT-MINISAL02-890910

PATIENT
  Age: 44 Year
  Sex: Female

DRUGS (8)
  1. AMLODIPINE [Suspect]
     Active Substance: AMLODIPINE BESYLATE
     Indication: Product used for unknown indication
     Dosage: 70 MILLIGRAM, TAKEN 14 CPS OF 5 MG
     Route: 065
     Dates: start: 20220118, end: 20220118
  2. METFORMIN [Suspect]
     Active Substance: METFORMIN HYDROCHLORIDE
     Indication: Product used for unknown indication
     Dosage: 10000 MILLIGRAM TAKEN 20 CPS OF 500 MG
     Route: 065
     Dates: start: 20220118, end: 20220118
  3. ASACOL [Suspect]
     Active Substance: MESALAMINE
     Indication: Product used for unknown indication
     Dosage: 9600 MILLIGRAMTAKEN 12 CPS OF 800 MG.
     Route: 065
     Dates: start: 20220118, end: 20220118
  4. CINNARIZINE\DIMENHYDRINATE [Suspect]
     Active Substance: CINNARIZINE\DIMENHYDRINATE
     Indication: Product used for unknown indication
     Dosage: 800 MILLIGRAM, TAKEN 20 CPS OF 40 MG
     Route: 065
     Dates: start: 20220118, end: 20220118
  5. ACETAMINOPHEN\CHLORPHENIRAMINE MALEATE [Suspect]
     Active Substance: ACETAMINOPHEN\CHLORPHENIRAMINE MALEATE
     Indication: Product used for unknown indication
     Dosage: 10 DOSAGE FORM
     Route: 065
     Dates: start: 20220118, end: 20220118
  6. BACTRIM [Suspect]
     Active Substance: SULFAMETHOXAZOLE\TRIMETHOPRIM
     Indication: Product used for unknown indication
     Dosage: 640 MILLIGRAM, TAKEN 4 CP OF 160/800 MG
     Route: 065
     Dates: start: 20220118, end: 20220118
  7. AUGMENTIN [Suspect]
     Active Substance: AMOXICILLIN\CLAVULANATE POTASSIUM
     Indication: Product used for unknown indication
     Dosage: 6000 MILLIGRAM, TAKEN 6CPS OF 1 G.
     Route: 065
     Dates: start: 20220118, end: 20220118
  8. DIOSMIN\HESPERIDIN [Suspect]
     Active Substance: DIOSMIN\HESPERIDIN
     Indication: Product used for unknown indication
     Dosage: 7500 MILLIGRAM, UNK
     Route: 065

REACTIONS (4)
  - Tachycardia [Not Recovered/Not Resolved]
  - Hypoglycaemia [Not Recovered/Not Resolved]
  - Drug abuse [Recovered/Resolved]
  - Suicide attempt [Recovered/Resolved]

NARRATIVE: CASE EVENT DATE: 20220118
